FAERS Safety Report 9345215 (Version 1)
Quarter: 2013Q2

REPORT INFORMATION
  Report Type: Spontaneous
  Country: IL (occurrence: IL)
  Receive Date: 20130612
  Receipt Date: 20130612
  Transmission Date: 20140414
  Serious: Yes (Hospitalization)
  Sender: FDA-Public Use
  Company Number: IL-MYLANLABS-2013S1012147

PATIENT
  Age: 69 Year
  Sex: Male

DRUGS (4)
  1. MERCAPTOPURINE [Suspect]
     Indication: CROHN^S DISEASE
     Route: 065
  2. MERCAPTOPURINE [Suspect]
     Indication: CROHN^S DISEASE
     Dosage: INCREASED BY 2 TABLETS/WEEK
     Route: 065
  3. VITAMIN B12 [Concomitant]
     Indication: CROHN^S DISEASE
     Route: 065
  4. PREDNISONE [Concomitant]
     Indication: CROHN^S DISEASE
     Dosage: 40MG, GRADUALLY REDUCED OVER 3 MONTHS
     Route: 065

REACTIONS (3)
  - Hyperammonaemic encephalopathy [Recovering/Resolving]
  - Nodular regenerative hyperplasia [Recovering/Resolving]
  - Hepatotoxicity [Recovering/Resolving]
